FAERS Safety Report 13775794 (Version 1)
Quarter: 2017Q3

REPORT INFORMATION
  Report Type: Spontaneous
  Country: IT (occurrence: IT)
  Receive Date: 20170720
  Receipt Date: 20170720
  Transmission Date: 20171127
  Serious: Yes (Death)
  Sender: FDA-Public Use
  Company Number: IT-PFIZER INC-1753821

PATIENT
  Age: 73 Year
  Sex: Female
  Weight: 64 kg

DRUGS (20)
  1. PACLITAXEL. [Suspect]
     Active Substance: PACLITAXEL
     Indication: OVARIAN CANCER METASTATIC
     Dosage: 102 MG, FREQ: TOTAL
     Route: 042
     Dates: start: 20130219, end: 20130219
  2. LASIX [Concomitant]
     Active Substance: FUROSEMIDE
     Indication: FLUID RETENTION
     Dosage: 20 MG, FREQ:4 DAY; INTERVAL:1
     Route: 042
  3. RANITIDINE. [Concomitant]
     Active Substance: RANITIDINE
     Indication: PROPHYLAXIS AGAINST GASTROINTESTINAL ULCER
     Dosage: 100 MG
     Route: 042
     Dates: start: 20130219, end: 20130219
  4. ZOFRAN [Concomitant]
     Active Substance: ONDANSETRON HYDROCHLORIDE
     Indication: PROPHYLAXIS OF NAUSEA AND VOMITING
     Dosage: 40 MG
     Route: 042
  5. BRONCOVALEAS /00139501/ [Concomitant]
     Active Substance: ALBUTEROL
     Indication: BRONCHOSPASM
     Dosage: 4 GTT, FREQ: 3 DAY; INTERVAL: 1
     Route: 055
  6. ALOXI [Concomitant]
     Active Substance: PALONOSETRON HYDROCHLORIDE
     Indication: PROPHYLAXIS OF NAUSEA AND VOMITING
     Dosage: 250 UG
     Route: 042
     Dates: start: 20130219, end: 20130219
  7. CLEXANE [Concomitant]
     Active Substance: ENOXAPARIN SODIUM
     Indication: THROMBOSIS PROPHYLAXIS
     Dosage: 4000 IU, 4 IU X1000
     Route: 058
  8. SALINE /00075401/ [Concomitant]
     Active Substance: SODIUM CHLORIDE
     Indication: PRODUCT USED FOR UNKNOWN INDICATION
     Dosage: UNK
  9. TACHIDOL [Concomitant]
     Active Substance: ACETAMINOPHEN\CODEINE PHOSPHATE
     Indication: ANALGESIC THERAPY
     Dosage: 1 DF, 1 POSOLOGICAL UNIT, FREQ: AS NECESSARY
     Route: 048
  10. ANTRA /00661201/ [Concomitant]
     Active Substance: OMEPRAZOLE
     Indication: PROPHYLAXIS AGAINST GASTROINTESTINAL ULCER
     Dosage: 40 MG
     Route: 048
  11. ALBUMINE BAXTER [Concomitant]
     Active Substance: ALBUMIN HUMAN
     Indication: HYPOALBUMINAEMIA
     Dosage: 100 MG, FREQ: 2 DAYS, INTERVAL: 1
     Route: 042
  12. ATEM [Concomitant]
     Active Substance: IPRATROPIUM BROMIDE
     Indication: BRONCHOSPASM
     Dosage: 4 GTT, 1 POSOLOGICAL UNIT SPOON
     Route: 055
  13. CLENIL /00212602/ [Concomitant]
     Active Substance: BECLOMETHASONE DIPROPIONATE
     Indication: BRONCHOSPASM
     Dosage: 0.4 MG
     Route: 055
  14. TARGOSID [Concomitant]
     Active Substance: TEICOPLANIN
     Indication: BACTERIAL INFECTION
     Dosage: 400 MG
     Route: 042
  15. TRIMETON [Concomitant]
     Active Substance: CHLORPHENIRAMINE MALEATE
     Indication: ALLERGY PROPHYLAXIS
     Dosage: 10 MG
     Route: 042
     Dates: start: 20130219, end: 20130219
  16. LAEVOLAC [Concomitant]
     Active Substance: LACTULOSE
     Indication: CONSTIPATION
     Dosage: 3 POSOLOGICAL UNIT; 1 SPOON, FREQ: 3 DAYS; INTERVAL:1
     Route: 048
  17. LEVOPRAID /00314301/ [Concomitant]
     Active Substance: SULPIRIDE
     Indication: DYSPEPSIA
     Dosage: 15 GTT, 30 DROPS, FREQ: 2 DAY; INTERVAL:1
     Route: 048
  18. SOLDESAM [Concomitant]
     Active Substance: DEXAMETHASONE
     Indication: ALLERGY PROPHYLAXIS
     Dosage: 8 MG
     Route: 042
     Dates: start: 20130219, end: 20130219
  19. CONTRAMAL [Concomitant]
     Active Substance: TRAMADOL HYDROCHLORIDE
     Indication: ANALGESIC THERAPY
     Dosage: 50 MG
     Route: 042
  20. TAZOCIN [Concomitant]
     Active Substance: PIPERACILLIN SODIUM\TAZOBACTAM SODIUM
     Indication: BACTERIAL INFECTION
     Dosage: 13.5 G, FREQ: 3 DAY; INTERVAL: 1
     Route: 042

REACTIONS (2)
  - Dyspnoea [Fatal]
  - Cardiac arrest [Fatal]

NARRATIVE: CASE EVENT DATE: 20130219
